FAERS Safety Report 5608891-3 (Version None)
Quarter: 2008Q1

REPORT INFORMATION
  Report Type: 
  Country: None (occurrence: None)
  Receive Date: 20080131
  Receipt Date: 20080122
  Transmission Date: 20080703
  Serious: Yes (Hospitalization)
  Sender: FDA-Public Use
  Company Number: PHBS2007DK05686

PATIENT
  Age: 37 Year
  Sex: Female

DRUGS (7)
  1. LEPONEX [Suspect]
     Indication: SCHIZOPHRENIA
     Dosage: 450 MG/D
     Route: 048
     Dates: start: 19970101
  2. LEPONEX [Suspect]
     Dosage: 200 MG/D
     Route: 048
     Dates: start: 20070404
  3. CISORDINOL DEPOT [Concomitant]
     Dosage: 150 MG Q2W
     Route: 030
  4. NOZINAN [Concomitant]
  5. LYSANTIN [Concomitant]
  6. NORITREN [Concomitant]
  7. CISORDINOL /NET/ [Concomitant]
     Dosage: 6 MG, BID
     Route: 048

REACTIONS (6)
  - ANXIETY [None]
  - BACK PAIN [None]
  - CAESAREAN SECTION [None]
  - DRUG EXPOSURE DURING PREGNANCY [None]
  - MANIA [None]
  - NAUSEA [None]
